FAERS Safety Report 9791591 (Version 1)
Quarter: 2014Q1

REPORT INFORMATION
  Report Type: Spontaneous
  Country: GB (occurrence: GB)
  Receive Date: 20140101
  Receipt Date: 20140101
  Transmission Date: 20141002
  Serious: Yes (Congenital Anomaly, Other)
  Sender: FDA-Public Use
  Company Number: 2013SP008724

PATIENT
  Sex: 0

DRUGS (3)
  1. NEVIRAPINE [Suspect]
     Indication: ANTIRETROVIRAL THERAPY
     Route: 064
     Dates: start: 20060302
  2. TENOFOVIR DISOPROXIL FUMARATE [Suspect]
     Indication: ANTIRETROVIRAL THERAPY
     Route: 064
     Dates: start: 20090901
  3. EMTRICITABINE [Suspect]
     Indication: ANTIRETROVIRAL THERAPY
     Route: 064
     Dates: start: 20090901

REACTIONS (1)
  - Spina bifida [Unknown]
